FAERS Safety Report 25760352 (Version 1)
Quarter: 2025Q3

REPORT INFORMATION
  Report Type: Spontaneous
  Country: US (occurrence: US)
  Receive Date: 20250904
  Receipt Date: 20250904
  Transmission Date: 20251021
  Serious: Yes (Death, Other)
  Sender: PFIZER
  Company Number: US-PFIZER INC-202500173866

PATIENT
  Age: 63 Year

DRUGS (1)
  1. RITUXIMAB [Suspect]
     Active Substance: RITUXIMAB
     Indication: Pemphigoid
     Dosage: 375 MG/M2, WEEKLY
     Route: 042

REACTIONS (4)
  - Pneumonia bacterial [Fatal]
  - Clostridium difficile colitis [Unknown]
  - Drug effective for unapproved indication [Unknown]
  - Off label use [Unknown]
